FAERS Safety Report 10313926 (Version 2)
Quarter: 2014Q3

REPORT INFORMATION
  Report Type: Spontaneous
  Country: JP (occurrence: JP)
  Receive Date: 20140718
  Receipt Date: 20140730
  Transmission Date: 20150326
  Serious: Yes (Other)
  Sender: FDA-Public Use
  Company Number: JP-TEVA-494951ISR

PATIENT
  Age: 65 Year
  Sex: Male

DRUGS (3)
  1. PLATOSIN (CISPLATIN) CONCENTRATE FOR SOLUTION FOR INFUSION [Suspect]
     Active Substance: CISPLATIN
     Route: 065
  2. SILODOSIN (URIEF) [Suspect]
     Active Substance: SILODOSIN
     Indication: BLADDER DISORDER
     Route: 048
  3. 5-FU (FLUOROURACIL) [Suspect]
     Active Substance: FLUOROURACIL

REACTIONS (2)
  - Urinary retention [Unknown]
  - Blood creatinine increased [Unknown]
